FAERS Safety Report 12635460 (Version 1)
Quarter: 2016Q3

REPORT INFORMATION
  Report Type: Report from Study
  Country: GB (occurrence: GB)
  Receive Date: 20160809
  Receipt Date: 20160809
  Transmission Date: 20161109
  Serious: Yes (Hospitalization, Other)
  Sender: FDA-Public Use
  Company Number: GB-BIOGEN-2013BI079036

PATIENT
  Age: 59 Year
  Sex: Female
  Weight: 48 kg

DRUGS (6)
  1. CO-AMOXICLAV [Concomitant]
     Active Substance: AMOXICILLIN\CLAVULANIC ACID
     Indication: URINARY TRACT INFECTION
     Route: 042
     Dates: start: 20130820, end: 20130824
  2. IBUPROFEN. [Concomitant]
     Active Substance: IBUPROFEN
     Indication: BACK PAIN
     Dates: start: 20130807, end: 201311
  3. NAPROXEN. [Concomitant]
     Active Substance: NAPROXEN
     Indication: BACK PAIN
     Dates: start: 20130807
  4. BG00012 [Suspect]
     Active Substance: DIMETHYL FUMARATE
     Indication: MULTIPLE SCLEROSIS
     Dates: start: 20100202
  5. CO- CODAMOL [Concomitant]
     Active Substance: ACETAMINOPHEN\CODEINE PHOSPHATE
     Indication: BACK PAIN
     Dates: start: 20130813
  6. SYNDOL CAPLETS [Concomitant]
     Indication: HEADACHE
     Route: 048
     Dates: start: 20100401

REACTIONS (1)
  - Comminuted fracture [Recovered/Resolved with Sequelae]

NARRATIVE: CASE EVENT DATE: 20130819
